FAERS Safety Report 14668866 (Version 2)
Quarter: 2018Q3

REPORT INFORMATION
  Report Type: Report from Study
  Country: CA (occurrence: CA)
  Receive Date: 20180322
  Receipt Date: 20180703
  Transmission Date: 20181010
  Serious: Yes (Hospitalization, Other)
  Sender: FDA-Public Use
  Company Number: CA-JNJFOC-20180322650

PATIENT
  Age: 12 Year
  Sex: Female
  Weight: 60.2 kg

DRUGS (3)
  1. REMICADE [Suspect]
     Active Substance: INFLIXIMAB
     Indication: CROHN^S DISEASE
     Dosage: 0, 2, 6 WEEKS
     Route: 042
     Dates: start: 20171205, end: 20180115
  2. ADALIMUMAB [Concomitant]
     Active Substance: ADALIMUMAB
     Indication: CROHN^S DISEASE
     Route: 065
     Dates: start: 20171027, end: 20180428
  3. PREDNISONE. [Concomitant]
     Active Substance: PREDNISONE
     Indication: CROHN^S DISEASE
     Route: 065
     Dates: start: 20180428, end: 20180428

REACTIONS (1)
  - SAPHO syndrome [Not Recovered/Not Resolved]

NARRATIVE: CASE EVENT DATE: 20180215
